FAERS Safety Report 16473119 (Version 2)
Quarter: 2020Q1

REPORT INFORMATION
  Report Type: Spontaneous
  Country: US (occurrence: US)
  Receive Date: 20190625
  Receipt Date: 20200211
  Transmission Date: 20200409
  Serious: No
  Sender: FDA-Public Use
  Company Number: US-TEVA-2019-US-1067002

PATIENT
  Sex: Female

DRUGS (4)
  1. ERENUMAB [Suspect]
     Active Substance: ERENUMAB
  2. ERENUMAB [Suspect]
     Active Substance: ERENUMAB
  3. GALCANEZUMAB [Suspect]
     Active Substance: GALCANEZUMAB
     Dates: start: 20190318
  4. FREMANEZUMAB [Suspect]
     Active Substance: FREMANEZUMAB
     Route: 065
     Dates: start: 20190226

REACTIONS (10)
  - Myalgia [Unknown]
  - Irritable bowel syndrome [Unknown]
  - Neuralgia [Unknown]
  - Arthralgia [Unknown]
  - Oedema [Unknown]
  - Rash pruritic [Unknown]
  - Pain [Unknown]
  - Constipation [Unknown]
  - Crepitations [Unknown]
  - Fatigue [Unknown]
